FAERS Safety Report 24284786 (Version 2)
Quarter: 2024Q4

REPORT INFORMATION
  Report Type: Spontaneous
  Country: JP (occurrence: JP)
  Receive Date: 20240905
  Receipt Date: 20241009
  Transmission Date: 20250114
  Serious: Yes (Other)
  Sender: BIOGEN
  Company Number: JP-BIOGEN-2024BI01280826

PATIENT
  Sex: Female

DRUGS (7)
  1. TYSABRI [Suspect]
     Active Substance: NATALIZUMAB
     Indication: Multiple sclerosis
     Route: 050
     Dates: start: 20190530
  2. AMLODIPINE [Concomitant]
     Active Substance: AMLODIPINE BESYLATE
     Route: 050
  3. TELMISARTAN [Concomitant]
     Active Substance: TELMISARTAN
     Route: 050
  4. TOCOPHEROL ACETATE [Concomitant]
     Active Substance: .ALPHA.-TOCOPHEROL ACETATE
     Route: 050
  5. AMITRIPTYLINE [Concomitant]
     Active Substance: AMITRIPTYLINE
     Route: 050
  6. MIRABEGRON [Concomitant]
     Active Substance: MIRABEGRON
     Route: 050
  7. POLAPREZINC [Concomitant]
     Active Substance: POLAPREZINC
     Route: 050

REACTIONS (1)
  - Breast cancer [Unknown]
